FAERS Safety Report 25950912 (Version 1)
Quarter: 2025Q4

REPORT INFORMATION
  Report Type: Spontaneous
  Country: US (occurrence: US)
  Receive Date: 20251023
  Receipt Date: 20251023
  Transmission Date: 20260118
  Serious: Yes (Other)
  Sender: SANOFI AVENTIS
  Company Number: US-SA-2025SA311997

PATIENT
  Sex: Female

DRUGS (7)
  1. DUPIXENT [Suspect]
     Active Substance: DUPILUMAB
     Indication: Pemphigoid
     Dosage: 300 MG, QOW
     Route: 058
     Dates: start: 20250917
  2. ALPRAZOLAM [Concomitant]
     Active Substance: ALPRAZOLAM
  3. CITALOPRAM [Concomitant]
     Active Substance: CITALOPRAM
  4. CLOBETASOL [Concomitant]
     Active Substance: CLOBETASOL
  5. EZETIMIBE [Concomitant]
     Active Substance: EZETIMIBE
  6. SIMVASTATIN [Concomitant]
     Active Substance: SIMVASTATIN
  7. Trazon [Concomitant]

REACTIONS (12)
  - Neuropathy peripheral [Not Recovered/Not Resolved]
  - Osteoporosis [Not Recovered/Not Resolved]
  - Paraesthesia [Not Recovered/Not Resolved]
  - Injection site warmth [Not Recovered/Not Resolved]
  - Gait disturbance [Not Recovered/Not Resolved]
  - Joint injury [Not Recovered/Not Resolved]
  - Nervousness [Not Recovered/Not Resolved]
  - Blister [Not Recovered/Not Resolved]
  - Injection site pain [Not Recovered/Not Resolved]
  - Pruritus [Unknown]
  - Therapeutic response shortened [Unknown]
  - Arthralgia [Not Recovered/Not Resolved]
